FAERS Safety Report 16179050 (Version 1)
Quarter: 2019Q2

REPORT INFORMATION
  Report Type: Spontaneous
  Country: US (occurrence: US)
  Receive Date: 20190410
  Receipt Date: 20190410
  Transmission Date: 20190711
  Serious: Yes (Other)
  Sender: FDA-Public Use
  Company Number: US-009507513-1904USA002172

PATIENT
  Sex: Female

DRUGS (1)
  1. PROVENTIL [Suspect]
     Active Substance: ALBUTEROL
     Dosage: UNK
     Route: 055

REACTIONS (5)
  - Vomiting [Unknown]
  - Product dose omission [Unknown]
  - Neoplasm malignant [Unknown]
  - Dyspnoea [Unknown]
  - Product availability issue [Unknown]
